FAERS Safety Report 4513410-9 (Version None)
Quarter: 2004Q4

REPORT INFORMATION
  Report Type: 
  Country: None (occurrence: None)
  Receive Date: 20041130
  Receipt Date: 20040921
  Transmission Date: 20050328
  Serious: No
  Sender: FDA-Public Use
  Company Number: US-BRISTOL-MYERS SQUIBB COMPANY-12708400

PATIENT
  Age: 76 Year
  Sex: Male
  Weight: 75 kg

DRUGS (8)
  1. ERBITUX [Suspect]
     Indication: PERITONEAL CARCINOMA
     Dosage: LOADING DOSE
     Route: 042
     Dates: start: 20040831, end: 20040831
  2. BENADRYL [Concomitant]
     Indication: PREMEDICATION
     Route: 042
  3. ZOFRAN [Concomitant]
  4. DEXAMETHASONE [Concomitant]
  5. ZANTAC [Concomitant]
  6. TAXOL [Concomitant]
     Route: 042
     Dates: start: 20040101
  7. CARBOPLATIN [Concomitant]
     Dosage: 1ST DOSE
     Route: 042
     Dates: start: 20040101
  8. NEULASTA [Concomitant]

REACTIONS (1)
  - RASH [None]
